FAERS Safety Report 14004492 (Version 1)
Quarter: 2017Q3

REPORT INFORMATION
  Report Type: Spontaneous
  Country: US (occurrence: US)
  Receive Date: 20170922
  Receipt Date: 20170922
  Transmission Date: 20171128
  Serious: No
  Sender: FDA-Public Use
  Company Number: US-CELGENEUS-USA-20170905365

PATIENT
  Age: 50 Year
  Sex: Female

DRUGS (2)
  1. OTEZLA [Suspect]
     Active Substance: APREMILAST
     Indication: PSORIASIS
     Dosage: 10 MILLIGRAM, 20 MILLIGRAM, 30 MILLIGRAM
     Route: 048
     Dates: start: 20170908
  2. OLUX [Concomitant]
     Active Substance: CLOBETASOL PROPIONATE
     Indication: PSORIASIS
     Route: 061

REACTIONS (6)
  - Pain of skin [Unknown]
  - Diarrhoea [Recovering/Resolving]
  - Nausea [Unknown]
  - Urinary retention [Unknown]
  - Headache [Recovering/Resolving]
  - Hypoaesthesia [Unknown]

NARRATIVE: CASE EVENT DATE: 20170918
